FAERS Safety Report 15210079 (Version 1)
Quarter: 2018Q3

REPORT INFORMATION
  Report Type: Spontaneous
  Country: US (occurrence: US)
  Receive Date: 20180727
  Receipt Date: 20180727
  Transmission Date: 20181010
  Serious: Yes (Hospitalization)
  Sender: FDA-Public Use
  Company Number: US-PFIZER INC-2018301962

PATIENT
  Age: 70 Year
  Sex: Male

DRUGS (6)
  1. LEVOBUNOLOL [Concomitant]
     Active Substance: LEVOBUNOLOL
     Dosage: UNK
  2. LATANOPROST. [Suspect]
     Active Substance: LATANOPROST
     Indication: OPEN ANGLE GLAUCOMA
     Dosage: UNK
     Route: 061
  3. DORZOLAMIDE [Concomitant]
     Active Substance: DORZOLAMIDE
     Dosage: UNK
  4. ASPIRIN (E.C.) [Concomitant]
     Active Substance: ASPIRIN
     Dosage: UNK
  5. VITAMIN E /00110501/ [Concomitant]
     Active Substance: TOCOPHEROL
     Dosage: 800 IU, DAILY
  6. MECLIZINE [Concomitant]
     Active Substance: MECLIZINE HYDROCHLORIDE
     Dosage: UNK

REACTIONS (1)
  - Hypertension [Recovered/Resolved]
